FAERS Safety Report 9308801 (Version 1)
Quarter: 2013Q2

REPORT INFORMATION
  Report Type: Spontaneous
  Country: US (occurrence: US)
  Receive Date: 20130524
  Receipt Date: 20130524
  Transmission Date: 20140414
  Serious: No
  Sender: FDA-Public Use
  Company Number: US-B.I. PHARMACEUTICALS,INC./RIDGEFIELD-2013-BI-14455BP

PATIENT
  Age: 40 Year
  Sex: Male
  Weight: 73 kg

DRUGS (2)
  1. SPIRIVA [Suspect]
     Indication: CHRONIC OBSTRUCTIVE PULMONARY DISEASE
     Dosage: 18 MCG
     Route: 055
     Dates: start: 201212
  2. ADVAIR [Concomitant]
     Indication: CHRONIC OBSTRUCTIVE PULMONARY DISEASE
     Dosage: FORMULATION:INHALATION AEROSOL: STRENGTH: 250 MCG/50 MCG; DAILY DOSE: 500 MCG/100 MCG
     Route: 055
     Dates: start: 201205

REACTIONS (2)
  - Cough [Not Recovered/Not Resolved]
  - Retching [Not Recovered/Not Resolved]
